FAERS Safety Report 24971654 (Version 1)
Quarter: 2025Q1

REPORT INFORMATION
  Report Type: Spontaneous
  Country: US (occurrence: US)
  Receive Date: 20250214
  Receipt Date: 20250214
  Transmission Date: 20250409
  Serious: Yes (Hospitalization, Other)
  Sender: MYLAN
  Company Number: US-MYLANLABS-2025M1011846

PATIENT
  Age: 44 Year
  Sex: Male

DRUGS (6)
  1. POSACONAZOLE [Suspect]
     Active Substance: POSACONAZOLE
     Indication: Meningitis coccidioides
     Dosage: 300 MILLIGRAM, QD
     Route: 065
  2. POSACONAZOLE [Suspect]
     Active Substance: POSACONAZOLE
     Dosage: 300 MILLIGRAM, BID
     Route: 065
  3. FLUCONAZOLE [Suspect]
     Active Substance: FLUCONAZOLE
     Indication: Meningitis coccidioides
     Route: 065
  4. AMPHOTERICIN B [Suspect]
     Active Substance: AMPHOTERICIN B
     Indication: Meningitis coccidioides
     Route: 042
  5. AMBISOME [Concomitant]
     Active Substance: AMPHOTERICIN B
     Indication: Meningitis coccidioides
     Route: 037
  6. AMBISOME [Concomitant]
     Active Substance: AMPHOTERICIN B
     Route: 037

REACTIONS (3)
  - Drug ineffective [Unknown]
  - Hepatic failure [Unknown]
  - Acute kidney injury [Unknown]

NARRATIVE: CASE EVENT DATE: 20220101
